FAERS Safety Report 9271123 (Version 1)
Quarter: 2013Q2

REPORT INFORMATION
  Report Type: Spontaneous
  Country: CA (occurrence: CA)
  Receive Date: 20130506
  Receipt Date: 20130506
  Transmission Date: 20140414
  Serious: Yes (Hospitalization, Other)
  Sender: FDA-Public Use
  Company Number: PHHY2013CA043411

PATIENT
  Age: 28 Year
  Sex: Female

DRUGS (4)
  1. RITALIN [Suspect]
     Dosage: UNK UKN, UNK
  2. EFEXOR [Suspect]
     Dosage: UNK UKN, UNK
  3. COPAXONE [Suspect]
     Indication: MULTIPLE SCLEROSIS
     Dosage: UNK UKN, UNK
     Dates: start: 20121130, end: 20130409
  4. MANNITOL [Concomitant]
     Dosage: UNK UKN, UNK

REACTIONS (9)
  - Anaphylactic reaction [Not Recovered/Not Resolved]
  - Respiratory rate increased [Not Recovered/Not Resolved]
  - Heart rate increased [Not Recovered/Not Resolved]
  - Dyspnoea [Not Recovered/Not Resolved]
  - Swelling face [Not Recovered/Not Resolved]
  - Vomiting [Unknown]
  - Diarrhoea [Unknown]
  - Multiple sclerosis relapse [Not Recovered/Not Resolved]
  - Malaise [Not Recovered/Not Resolved]
